FAERS Safety Report 15433605 (Version 1)
Quarter: 2018Q3

REPORT INFORMATION
  Report Type: Report from Study
  Country: None (occurrence: US)
  Receive Date: 20180927
  Receipt Date: 20180927
  Transmission Date: 20181010
  Serious: Yes (Hospitalization, Other)
  Sender: FDA-Public Use
  Company Number: US-ABBVIE-18K-163-2428196-00

PATIENT
  Age: 57 Year
  Sex: Male
  Weight: 80.81 kg

DRUGS (5)
  1. XANAX [Concomitant]
     Active Substance: ALPRAZOLAM
     Indication: ANXIETY
  2. HUMIRA [Suspect]
     Active Substance: ADALIMUMAB
     Indication: CROHN^S DISEASE
  3. HUMIRA [Suspect]
     Active Substance: ADALIMUMAB
     Indication: COLITIS ULCERATIVE
     Route: 058
     Dates: start: 2011, end: 201808
  4. PRAVASTATIN. [Concomitant]
     Active Substance: PRAVASTATIN
     Indication: BLOOD CHOLESTEROL INCREASED
  5. AMLODIPINE [Concomitant]
     Active Substance: AMLODIPINE BESYLATE
     Indication: HYPERTENSION

REACTIONS (7)
  - Rib fracture [Recovered/Resolved]
  - Loss of consciousness [Recovered/Resolved]
  - Lung neoplasm malignant [Recovering/Resolving]
  - Fractured coccyx [Recovered/Resolved]
  - Fall [Recovered/Resolved]
  - Impaired healing [Unknown]
  - Procedural pain [Unknown]

NARRATIVE: CASE EVENT DATE: 2016
